FAERS Safety Report 7833457-4 (Version None)
Quarter: 2011Q4

REPORT INFORMATION
  Report Type: 
  Country: None (occurrence: None)
  Receive Date: 20111020
  Receipt Date: 20111010
  Transmission Date: 20120403
  Serious: Yes (Other)
  Sender: FDA-Public Use
  Company Number: 2011P1009420

PATIENT
  Age: 25 Year
  Sex: Male

DRUGS (4)
  1. FENTANYL [Suspect]
     Indication: TOOTH EXTRACTION
     Dosage: 100 UG;X1;IV
     Route: 042
  2. GLYCOPYRROLATE [Concomitant]
  3. MIDAZOLAM [Suspect]
     Indication: TOOTH EXTRACTION
     Dosage: 5 MG;X1;IV
     Route: 042
  4. PROPOFOL [Suspect]
     Indication: TOOTH EXTRACTION
     Dosage: 100 MG;X1;IV
     Route: 042

REACTIONS (5)
  - ANAESTHETIC COMPLICATION [None]
  - OBSTRUCTIVE AIRWAYS DISORDER [None]
  - PARADOXICAL DRUG REACTION [None]
  - OXYGEN SATURATION DECREASED [None]
  - APNOEA [None]
